FAERS Safety Report 5160004-0 (Version None)
Quarter: 2006Q4

REPORT INFORMATION
  Report Type: 
  Country: None (occurrence: None)
  Receive Date: 20061129
  Receipt Date: 20060613
  Transmission Date: 20070319
  Serious: Yes (Other)
  Sender: FDA-Public Use
  Company Number: 2006-02368

PATIENT
  Age: 65 Year
  Sex: Female
  Weight: 77.3 kg

DRUGS (7)
  1. BUPROPION HCL [Suspect]
     Indication: DEPRESSION
     Dosage: 150MG PER DAY
     Route: 048
     Dates: start: 20060515, end: 20060528
  2. WELLBUTRIN SR [Suspect]
     Indication: DEPRESSION
     Dosage: 150MG PER DAY
     Route: 048
     Dates: start: 20010101, end: 20060513
  3. ADVAIR DISKUS 100/50 [Concomitant]
     Dosage: 1PUFF PER DAY
     Route: 055
     Dates: start: 20040101
  4. LOVASTATIN [Concomitant]
     Dosage: 1TAB PER DAY
     Route: 048
     Dates: start: 20060302
  5. NIACIN [Concomitant]
     Dosage: 500MG PER DAY
     Route: 048
     Dates: start: 20060302
  6. CALCIUM [Concomitant]
  7. MULTI-VITAMIN [Concomitant]

REACTIONS (6)
  - AGITATION [None]
  - CRYING [None]
  - DEPRESSION [None]
  - DRUG INEFFECTIVE [None]
  - INSOMNIA [None]
  - SUICIDAL IDEATION [None]
